FAERS Safety Report 9346293 (Version 1)
Quarter: 2013Q2

REPORT INFORMATION
  Report Type: Spontaneous
  Country: CA (occurrence: CA)
  Receive Date: 20130613
  Receipt Date: 20130613
  Transmission Date: 20140414
  Serious: Yes (Hospitalization)
  Sender: FDA-Public Use
  Company Number: CA-AMGEN-CANSP2013041457

PATIENT
  Age: 23 Year
  Sex: Male

DRUGS (2)
  1. NEUPOGEN [Suspect]
     Indication: TESTIS CANCER
     Dosage: UNK
     Route: 065
     Dates: start: 20130424
  2. CHEMOTHERAPEUTICS [Concomitant]
     Indication: TESTIS CANCER
     Dosage: UNK

REACTIONS (5)
  - Febrile neutropenia [Recovering/Resolving]
  - White blood cell count decreased [Recovering/Resolving]
  - Oropharyngeal pain [Unknown]
  - Platelet count decreased [Recovering/Resolving]
  - White blood cell count increased [Unknown]
